FAERS Safety Report 8231224-3 (Version None)
Quarter: 2012Q1

REPORT INFORMATION
  Report Type: 
  Country: None (occurrence: None)
  Receive Date: 20120320
  Receipt Date: 20120309
  Transmission Date: 20120608
  Serious: Yes (Other)
  Sender: FDA-Public Use
  Company Number: DKLU1077592

PATIENT
  Age: 2 Year
  Sex: Female

DRUGS (4)
  1. ACTH [Concomitant]
  2. TOPAMAX [Concomitant]
  3. SABRIL [Suspect]
     Indication: EPILEPSY
     Dosage: 1000 MG MILLIGRAM(S), 2 IN 1 D, ORAL
     Route: 048
     Dates: start: 20100204
  4. SABRIL [Suspect]
     Indication: INFANTILE SPASMS
     Dosage: 1000 MG MILLIGRAM(S), 2 IN 1 D, ORAL
     Route: 048
     Dates: start: 20100204

REACTIONS (2)
  - BLINDNESS [None]
  - TOXICITY TO VARIOUS AGENTS [None]
